FAERS Safety Report 8796899 (Version 1)
Quarter: 2012Q4

REPORT INFORMATION
  Report Type: 
  Country: US (occurrence: US)
  Receive Date: 20120920
  Receipt Date: 20120920
  Transmission Date: 20130627
  Serious: No
  Sender: FDA-Public Use
  Company Number: US-B.I. PHARMACEUTICALS,INC./RIDGEFIELD-2012-BP-22954BP

PATIENT
  Sex: Female
  Weight: 45 kg

DRUGS (2)
  1. MICARDIS [Suspect]
     Indication: HYPERTENSION
     Dosage: 40 mg
     Route: 048
     Dates: start: 2004
  2. ASPIRIN [Concomitant]
     Indication: PROPHYLAXIS
     Dosage: 81 mg
     Route: 048
     Dates: start: 2004

REACTIONS (3)
  - Haematochezia [Recovered/Resolved]
  - Swelling [Not Recovered/Not Resolved]
  - Oedema peripheral [Not Recovered/Not Resolved]
